FAERS Safety Report 17982605 (Version 2)
Quarter: 2020Q3

REPORT INFORMATION
  Report Type: Report from Study
  Country: US (occurrence: US)
  Receive Date: 20200706
  Receipt Date: 20200803
  Transmission Date: 20201103
  Serious: Yes (Hospitalization, Other)
  Sender: FDA-Public Use
  Company Number: US-ASTELLAS-2020US015094

PATIENT
  Age: 68 Year
  Sex: Male

DRUGS (3)
  1. ENZALUTAMIDE [Suspect]
     Active Substance: ENZALUTAMIDE
     Route: 048
     Dates: start: 20200426
  2. ENZALUTAMIDE [Suspect]
     Active Substance: ENZALUTAMIDE
     Route: 048
     Dates: start: 20200522
  3. ENZALUTAMIDE [Suspect]
     Active Substance: ENZALUTAMIDE
     Indication: METASTASIS
     Route: 048
     Dates: start: 20200417

REACTIONS (4)
  - Brain neoplasm [Not Recovered/Not Resolved]
  - Product use in unapproved indication [Unknown]
  - Fatigue [Unknown]
  - Back pain [Unknown]

NARRATIVE: CASE EVENT DATE: 202004
